FAERS Safety Report 25058645 (Version 2)
Quarter: 2025Q2

REPORT INFORMATION
  Report Type: Spontaneous
  Country: US (occurrence: US)
  Receive Date: 20250310
  Receipt Date: 20250416
  Transmission Date: 20250717
  Serious: No
  Sender: ROCHE
  Company Number: US-ROCHE-10000225793

PATIENT
  Sex: Male

DRUGS (5)
  1. XOLAIR [Suspect]
     Active Substance: OMALIZUMAB
     Indication: Urticaria
     Dosage: 2 VIAL
     Route: 058
     Dates: start: 20241121
  2. ASPIRIN [Concomitant]
     Active Substance: ASPIRIN
  3. AVODART [Concomitant]
     Active Substance: DUTASTERIDE
  4. MELOXICAM [Concomitant]
     Active Substance: MELOXICAM
  5. OMEPRAZOLE [Concomitant]
     Active Substance: OMEPRAZOLE

REACTIONS (2)
  - Drug ineffective [Unknown]
  - Urticaria [Unknown]

NARRATIVE: CASE EVENT DATE: 20250130
